FAERS Safety Report 7421831-X (Version None)
Quarter: 2011Q2

REPORT INFORMATION
  Report Type: 
  Country: None (occurrence: None)
  Receive Date: 20110418
  Receipt Date: 20110407
  Transmission Date: 20111010
  Serious: Yes (Other)
  Sender: FDA-Public Use
  Company Number: JP-CEPHALON-2009011432

PATIENT
  Sex: Female

DRUGS (1)
  1. MODAFINIL [Suspect]
     Indication: NARCOLEPSY
     Route: 048
     Dates: start: 20090606

REACTIONS (1)
  - EPILEPTIC PSYCHOSIS [None]
